FAERS Safety Report 13152199 (Version 5)
Quarter: 2017Q2

REPORT INFORMATION
  Report Type: Spontaneous
  Country: CA (occurrence: CA)
  Receive Date: 20170125
  Receipt Date: 20170623
  Transmission Date: 20170830
  Serious: Yes (Other)
  Sender: FDA-Public Use
  Company Number: CA-CELLTRION HEALTHCARE HUNGARY KFT-2016CA014220

PATIENT

DRUGS (11)
  1. INFLECTRA [Suspect]
     Active Substance: INFLIXIMAB-DYYB
     Dosage: 300 MG, CYCLIC,  (EVERY 0, 2,6 WEEKS THEN EVERY 8 WEEKS FOR 12 MONTHS
     Route: 042
  2. LASIX [Concomitant]
     Active Substance: FUROSEMIDE
     Dosage: UNK
     Dates: start: 2013
  3. SLOW K [Concomitant]
     Active Substance: POTASSIUM CHLORIDE
     Dosage: UNK
     Dates: start: 2003
  4. FOLIC ACID ALMUS [Concomitant]
     Active Substance: FOLIC ACID
     Dosage: 5 MG, DAILY
  5. METHOTREXATE. [Concomitant]
     Active Substance: METHOTREXATE
     Dosage: 20 MG, WEEKLY
     Route: 048
     Dates: start: 201605
  6. LIPITOR [Concomitant]
     Active Substance: ATORVASTATIN CALCIUM
     Dosage: UNK
     Dates: start: 2003
  7. INFLECTRA [Suspect]
     Active Substance: INFLIXIMAB-DYYB
     Indication: PSORIATIC ARTHROPATHY
     Dosage: 300 MG, CYCLIC, EVERY 0, 2,6 WEEKS THEN EVERY 8 WEKS FOR 12 MONTHS
     Route: 042
     Dates: start: 20170105, end: 20170116
  8. CELEBREX [Concomitant]
     Active Substance: CELECOXIB
     Dosage: 1 DF, UNK
     Dates: start: 2012
  9. COZAAR INICIO [Concomitant]
     Dosage: UNK,1X/DAY
     Dates: start: 2003
  10. CLINDAMYCIN. [Concomitant]
     Active Substance: CLINDAMYCIN
     Dosage: UNK
     Route: 065
     Dates: start: 20170529
  11. ELTROXIN [Concomitant]
     Active Substance: LEVOTHYROXINE
     Dosage: UNK,1X/DAY
     Dates: start: 2003

REACTIONS (8)
  - Heart rate decreased [Unknown]
  - Pallor [Unknown]
  - Product use issue [Unknown]
  - Cough [Not Recovered/Not Resolved]
  - Malignant melanoma [Unknown]
  - Wheezing [Unknown]
  - Asthenia [Unknown]
  - Pulmonary congestion [Not Recovered/Not Resolved]

NARRATIVE: CASE EVENT DATE: 201701
